FAERS Safety Report 4873468-4 (Version None)
Quarter: 2005Q4

REPORT INFORMATION
  Report Type: 
  Country: None (occurrence: None)
  Receive Date: 20051201
  Receipt Date: 20050830
  Transmission Date: 20060501
  Serious: No
  Sender: FDA-Public Use
  Company Number: 2005PV001381

PATIENT
  Age: 76 Year
  Sex: Male
  Weight: 81.6475 kg

DRUGS (11)
  1. BYETTA [Suspect]
     Indication: DIABETES MELLITUS NON-INSULIN-DEPENDENT
     Dosage: SEE IMAGE
     Route: 058
     Dates: start: 20050727, end: 20050101
  2. BYETTA [Suspect]
     Indication: DIABETES MELLITUS NON-INSULIN-DEPENDENT
     Dosage: SEE IMAGE
     Route: 058
     Dates: start: 20050801
  3. COUMADIN [Concomitant]
  4. NEURONTIN [Concomitant]
  5. LOPRESSOR [Concomitant]
  6. ZOCOR [Concomitant]
  7. FOSAMAX [Concomitant]
  8. PLAVIX [Concomitant]
  9. ALTACE [Concomitant]
  10. FOLATE [Concomitant]
  11. CITRACAL + D [Concomitant]

REACTIONS (2)
  - APPETITE DISORDER [None]
  - PROTHROMBIN TIME PROLONGED [None]
